FAERS Safety Report 9681945 (Version 3)
Quarter: 2014Q4

REPORT INFORMATION
  Report Type: Report from Study
  Country: US (occurrence: US)
  Receive Date: 20131111
  Receipt Date: 20141028
  Transmission Date: 20150529
  Serious: Yes (Hospitalization)
  Sender: FDA-Public Use
  Company Number: US-US-EMD SERONO, INC.-7248275

PATIENT
  Age: 70 Year
  Sex: Female

DRUGS (1)
  1. REBIF [Suspect]
     Active Substance: INTERFERON BETA-1A
     Indication: MULTIPLE SCLEROSIS
     Route: 058
     Dates: start: 20100526

REACTIONS (7)
  - Fall [Unknown]
  - Dizziness [Unknown]
  - Vitamin B12 abnormal [Not Recovered/Not Resolved]
  - Asthenia [Recovering/Resolving]
  - Duodenal ulcer [Recovered/Resolved]
  - Urinary incontinence [Unknown]
  - Anaemia [Recovering/Resolving]

NARRATIVE: CASE EVENT DATE: 201311
